FAERS Safety Report 16419569 (Version 21)
Quarter: 2020Q4

REPORT INFORMATION
  Report Type: Spontaneous
  Country: US (occurrence: US)
  Receive Date: 20190612
  Receipt Date: 20201223
  Transmission Date: 20210113
  Serious: Yes (Hospitalization, Other)
  Sender: FDA-Public Use
  Company Number: US-PFIZER INC-2014001145

PATIENT
  Age: 55 Year
  Sex: Female
  Weight: 52.16 kg

DRUGS (3)
  1. RELPAX [Suspect]
     Active Substance: ELETRIPTAN HYDROBROMIDE
     Dosage: 40 MG, 1X/DAY
     Route: 048
     Dates: start: 2000, end: 202001
  2. GABAPENTIN. [Concomitant]
     Active Substance: GABAPENTIN
     Dosage: UNK
  3. RELPAX [Suspect]
     Active Substance: ELETRIPTAN HYDROBROMIDE
     Indication: MIGRAINE
     Dosage: 40 MG, AS NEEDED
     Route: 048

REACTIONS (19)
  - Lower limb fracture [Recovering/Resolving]
  - Generalised tonic-clonic seizure [Unknown]
  - Aphasia [Not Recovered/Not Resolved]
  - Road traffic accident [Recovering/Resolving]
  - Skull fracture [Recovering/Resolving]
  - Pelvic fracture [Recovering/Resolving]
  - Epilepsy [Unknown]
  - Blindness [Unknown]
  - Intracranial aneurysm [Unknown]
  - Loss of personal independence in daily activities [Unknown]
  - Gait inability [Unknown]
  - Coma [Recovering/Resolving]
  - Upper limb fracture [Recovering/Resolving]
  - Foot fracture [Recovering/Resolving]
  - Eye injury [Unknown]
  - Ligament sprain [Unknown]
  - Pain [Unknown]
  - Craniocerebral injury [Recovering/Resolving]
  - Headache [Unknown]

NARRATIVE: CASE EVENT DATE: 201707
